FAERS Safety Report 5366632-1 (Version None)
Quarter: 2007Q2

REPORT INFORMATION
  Report Type: 
  Country: None (occurrence: None)
  Receive Date: 20070622
  Receipt Date: 20070613
  Transmission Date: 20071010
  Serious: Yes (Hospitalization)
  Sender: FDA-Public Use
  Company Number: SG-NOVOPROD-264535

PATIENT
  Age: 15 Year
  Sex: Female

DRUGS (4)
  1. NOVOLOG MIX 70/30 [Suspect]
     Indication: DIABETES MELLITUS INSULIN-DEPENDENT
     Dates: start: 20070501, end: 20070529
  2. MIXTARD HUMAN 70/30 [Suspect]
     Indication: DIABETES MELLITUS INSULIN-DEPENDENT
     Dates: start: 20070529, end: 20070603
  3. MIXTARD 50 [Suspect]
     Indication: DIABETES MELLITUS INSULIN-DEPENDENT
     Dates: start: 20070529, end: 20070603
  4. NOVORAPID [Suspect]
     Indication: DIABETES MELLITUS INSULIN-DEPENDENT
     Dates: start: 20070101

REACTIONS (4)
  - EYE SWELLING [None]
  - INJECTION SITE RASH [None]
  - LIP SWELLING [None]
  - RESPIRATORY TRACT INFECTION [None]
